FAERS Safety Report 10170076 (Version 2)
Quarter: 2014Q4

REPORT INFORMATION
  Report Type: Spontaneous
  Country: KW (occurrence: KW)
  Receive Date: 20140513
  Receipt Date: 20141014
  Transmission Date: 20150528
  Serious: Yes (Other)
  Sender: FDA-Public Use
  Company Number: KW-MYLANLABS-2014S1010048

PATIENT

DRUGS (6)
  1. ALFACALCIDOL [Concomitant]
     Active Substance: ALFACALCIDOL
     Dosage: 1 MG,QD
  2. INDOMETACINE [Concomitant]
     Dosage: 28 MG,QD
  3. MERCAPTAMINE [Suspect]
     Active Substance: CYSTEAMINE
     Indication: CYSTINOSIS
     Dosage: 300 MG,QID
     Dates: start: 201307
  4. PHOSPHATE SANDOZ [Concomitant]
     Dosage: 16 MMOL,QD
  5. MERCAPTAMINE [Suspect]
     Active Substance: CYSTEAMINE
     Dosage: 300 MG,QID
     Dates: start: 201307
  6. RANITIDINE [Concomitant]
     Active Substance: RANITIDINE\RANITIDINE HYDROCHLORIDE
     Dosage: 75 MG,QD

REACTIONS (4)
  - White blood cell disorder [Recovered/Resolved with Sequelae]
  - Incorrect route of drug administration [Not Recovered/Not Resolved]
  - Drug ineffective [Recovered/Resolved with Sequelae]
  - Product quality issue [None]

NARRATIVE: CASE EVENT DATE: 20140103
